FAERS Safety Report 15551600 (Version 1)
Quarter: 2018Q4

REPORT INFORMATION
  Report Type: Report from Study
  Country: DE (occurrence: DE)
  Receive Date: 20181025
  Receipt Date: 20181025
  Transmission Date: 20190205
  Serious: Yes (Hospitalization)
  Sender: FDA-Public Use
  Company Number: DE-SA-2018SA262994

PATIENT
  Age: 63 Year
  Sex: Male
  Weight: 61 kg

DRUGS (6)
  1. AFLIBERCEPT [Suspect]
     Active Substance: AFLIBERCEPT
     Dosage: 4 MG/KG, QCY
     Route: 042
     Dates: start: 20180814, end: 20180814
  2. IRINOTECAN [Concomitant]
     Active Substance: IRINOTECAN
     Indication: COLORECTAL CANCER METASTATIC
     Dosage: 350 MG, QCY
     Route: 042
     Dates: start: 20180911, end: 20180911
  3. AFLIBERCEPT [Suspect]
     Active Substance: AFLIBERCEPT
     Indication: COLORECTAL CANCER METASTATIC
     Dosage: 244 MG, QCY
     Route: 042
     Dates: start: 20180828, end: 20180828
  4. IRINOTECAN [Concomitant]
     Active Substance: IRINOTECAN
     Dosage: 350 MG, QCY
     Route: 042
     Dates: start: 20180814, end: 20180814
  5. LEUCOVORIN [FOLINIC ACID] [Concomitant]
     Active Substance: LEUCOVORIN
     Indication: COLORECTAL CANCER METASTATIC
     Dosage: UNK UNK, QCY
     Route: 042
  6. FLUOROURACIL. [Concomitant]
     Active Substance: FLUOROURACIL
     Indication: COLORECTAL CANCER METASTATIC
     Dosage: UNK UNK, QCY
     Route: 042

REACTIONS (2)
  - Large intestine perforation [Recovered/Resolved]
  - Colonic fistula [Recovered/Resolved]

NARRATIVE: CASE EVENT DATE: 20180910
